FAERS Safety Report 8193778-5 (Version None)
Quarter: 2012Q1

REPORT INFORMATION
  Report Type: 
  Country: None (occurrence: None)
  Receive Date: 20120308
  Receipt Date: 20120302
  Transmission Date: 20120608
  Serious: Yes (Hospitalization)
  Sender: FDA-Public Use
  Company Number: DE-AMGEN-DEUSP2012011500

PATIENT
  Sex: Female

DRUGS (2)
  1. VITAMIN D [Concomitant]
     Dosage: UNK
  2. CINACALCET HYDROCHLORIDE [Suspect]
     Indication: HYPERPARATHYROIDISM SECONDARY
     Dosage: 30 MG, UNK

REACTIONS (2)
  - MENINGITIS LISTERIA [None]
  - BLOOD CALCIUM INCREASED [None]
